FAERS Safety Report 20575544 (Version 2)
Quarter: 2022Q1

REPORT INFORMATION
  Report Type: Spontaneous
  Country: US (occurrence: US)
  Receive Date: 20220310
  Receipt Date: 20220310
  Transmission Date: 20220424
  Serious: Yes (Hospitalization, Other)
  Sender: FDA-Public Use
  Company Number: US-GILEAD-2022-0572068

PATIENT
  Age: 75 Year
  Sex: Male

DRUGS (2)
  1. AMBRISENTAN [Suspect]
     Active Substance: AMBRISENTAN
     Indication: Product used for unknown indication
     Dosage: UNK
     Route: 065
  2. BUMEX [Concomitant]
     Active Substance: BUMETANIDE
     Dosage: 80 MG

REACTIONS (16)
  - Atrial flutter [Unknown]
  - Atrial fibrillation [Unknown]
  - Stent placement [Unknown]
  - Malaise [Unknown]
  - Left ventricular failure [Not Recovered/Not Resolved]
  - Hyperhidrosis [Unknown]
  - Heart rate increased [Unknown]
  - Abnormal loss of weight [Unknown]
  - Venous occlusion [Unknown]
  - Spinal stenosis [Unknown]
  - Intervertebral disc degeneration [Not Recovered/Not Resolved]
  - Chronic obstructive pulmonary disease [Not Recovered/Not Resolved]
  - Troponin abnormal [Unknown]
  - Unevaluable event [Unknown]
  - Product use issue [Recovered/Resolved]
  - Expired product administered [Recovered/Resolved]

NARRATIVE: CASE EVENT DATE: 20210701
